FAERS Safety Report 9584529 (Version 1)
Quarter: 2013Q4

REPORT INFORMATION
  Report Type: Spontaneous
  Country: US (occurrence: US)
  Receive Date: 20131002
  Receipt Date: 20131002
  Transmission Date: 20140711
  Serious: No
  Sender: FDA-Public Use
  Company Number: US-AMGEN-USASP2013053581

PATIENT
  Age: 66 Year
  Sex: Female

DRUGS (4)
  1. ENBREL [Suspect]
     Indication: PRODUCT USED FOR UNKNOWN INDICATION
     Dosage: 25 MG, 2 INJECTIONS AS DIRECTED EVERY WEEK
     Route: 065
  2. BENAZEPRIL [Concomitant]
     Dosage: 5 MG, UNK
  3. LEVOTHYROXIN [Concomitant]
     Dosage: 175 MUG, UNK
  4. CALCIUM +D                         /07511201/ [Concomitant]
     Dosage: UNK

REACTIONS (1)
  - Muscle strain [Unknown]
